FAERS Safety Report 23299303 (Version 2)
Quarter: 2024Q2

REPORT INFORMATION
  Report Type: Spontaneous
  Country: US (occurrence: US)
  Receive Date: 20231215
  Receipt Date: 20240405
  Transmission Date: 20240716
  Serious: No
  Sender: FDA-Public Use
  Company Number: US-SA-SAC20231211000457

PATIENT
  Age: 8 Year
  Sex: Male

DRUGS (2)
  1. DUPIXENT [Suspect]
     Active Substance: DUPILUMAB
     Indication: Dermatitis atopic
     Dosage: 600 MG, 1X
     Route: 058
     Dates: start: 202309, end: 202309
  2. DUPIXENT [Suspect]
     Active Substance: DUPILUMAB
     Dosage: 300 MG, Q4W
     Route: 058
     Dates: start: 2023

REACTIONS (6)
  - Eczema [Not Recovered/Not Resolved]
  - Conjunctivitis [Unknown]
  - Eczema eyelids [Unknown]
  - Ocular hyperaemia [Unknown]
  - Eye inflammation [Unknown]
  - Pustule [Unknown]

NARRATIVE: CASE EVENT DATE: 20231101
